FAERS Safety Report 4541595-7 (Version None)
Quarter: 2004Q4

REPORT INFORMATION
  Report Type: 
  Country: None (occurrence: None)
  Receive Date: 20041227
  Receipt Date: 20041216
  Transmission Date: 20050328
  Serious: Yes (Hospitalization)
  Sender: FDA-Public Use
  Company Number: 2004116349

PATIENT
  Age: 53 Year
  Sex: Male

DRUGS (3)
  1. RANITIDINE [Suspect]
     Dosage: 300 MG QD, ORAL
     Route: 048
  2. ATORVASTATIN (ATORVASTATIN) [Concomitant]
  3. CLOPIDOGREL (CLOPIDOGREL) [Concomitant]

REACTIONS (10)
  - ACUTE GENERALISED EXANTHEMATOUS PUSTULOSIS [None]
  - EOSINOPHILIA [None]
  - EPIDERMAL NECROSIS [None]
  - ERYTHEMA MULTIFORME [None]
  - LEUKOCYTOSIS [None]
  - NEUTROPHILIA [None]
  - OEDEMA PERIPHERAL [None]
  - RASH ERYTHEMATOUS [None]
  - RASH PUSTULAR [None]
  - SKIN DESQUAMATION [None]
